FAERS Safety Report 9157633 (Version 1)
Quarter: 2013Q1

REPORT INFORMATION
  Report Type: Spontaneous
  Country: FR (occurrence: None)
  Receive Date: 20130213
  Receipt Date: 20130213
  Transmission Date: 20140127
  Serious: Yes (Other)
  Sender: FDA-Public Use
  Company Number: FR-2012-2907

PATIENT
  Age: 62 Year
  Sex: Male
  Weight: 44 kg

DRUGS (7)
  1. NAVELBINE [Suspect]
     Indication: NON-SMALL CELL LUNG CANCER
     Route: 042
  2. NAVELBINE [Suspect]
     Route: 042
  3. CISPLATIN [Suspect]
     Route: 042
  4. TRAMADOL [Concomitant]
  5. FORLAX [Concomitant]
  6. VENTOLINE [Concomitant]
  7. VENTOLINE [Concomitant]

REACTIONS (2)
  - Burning sensation [None]
  - Injection site haematoma [None]
